FAERS Safety Report 5023408-2 (Version None)
Quarter: 2006Q2

REPORT INFORMATION
  Report Type: 
  Country: None (occurrence: None)
  Receive Date: 20060612
  Receipt Date: 20060508
  Transmission Date: 20061013
  Serious: Yes (Other)
  Sender: FDA-Public Use
  Company Number: MX-AVENTIS-200615002GDDC

PATIENT
  Age: 32 Year
  Sex: Female

DRUGS (7)
  1. ARAVA [Suspect]
     Indication: MIXED CONNECTIVE TISSUE DISEASE
     Route: 048
     Dates: start: 20030101, end: 20051001
  2. DEFLAZACORT [Suspect]
     Indication: MIXED CONNECTIVE TISSUE DISEASE
     Route: 048
     Dates: start: 19980101
  3. METHOTREXATE SODIUM [Concomitant]
     Dosage: DOSE: UNK
     Dates: start: 20051001, end: 20060101
  4. METHOTREXATE SODIUM [Concomitant]
     Dosage: DOSE: UNK
     Dates: start: 20060212
  5. CHLOROQUINE PHOSPHATE [Concomitant]
     Dosage: DOSE: UNK
     Dates: end: 20051001
  6. PLAQUENIL [Concomitant]
     Dosage: DOSE: UNK
     Dates: start: 20060212, end: 20060317
  7. INDOCID [Concomitant]
     Route: 048
     Dates: start: 20051001, end: 20060511

REACTIONS (5)
  - BLOOD PRESSURE INCREASED [None]
  - CAESAREAN SECTION [None]
  - DRUG EXPOSURE DURING PREGNANCY [None]
  - PRE-ECLAMPSIA [None]
  - ULTRASOUND ANTENATAL SCREEN ABNORMAL [None]
